FAERS Safety Report 12139671 (Version 2)
Quarter: 2016Q1

REPORT INFORMATION
  Report Type: Report from Study
  Country: DE (occurrence: DE)
  Receive Date: 20160303
  Receipt Date: 20160322
  Transmission Date: 20160526
  Serious: Yes (Other)
  Sender: FDA-Public Use
  Company Number: DE-ROCHE-1719801

PATIENT
  Age: 78 Year
  Sex: Male
  Weight: 80 kg

DRUGS (3)
  1. RANIBIZUMAB [Suspect]
     Active Substance: RANIBIZUMAB
     Route: 050
     Dates: start: 20160115
  2. RANIBIZUMAB [Suspect]
     Active Substance: RANIBIZUMAB
     Indication: PRODUCT USED FOR UNKNOWN INDICATION
     Dosage: 9 DOSES
     Route: 065
     Dates: start: 20140922, end: 201512
  3. RANIBIZUMAB [Suspect]
     Active Substance: RANIBIZUMAB
     Indication: NEOVASCULAR AGE-RELATED MACULAR DEGENERATION
     Route: 050
     Dates: start: 20151203

REACTIONS (1)
  - Detachment of retinal pigment epithelium [Unknown]

NARRATIVE: CASE EVENT DATE: 20151027
